FAERS Safety Report 4658728-4 (Version None)
Quarter: 2005Q2

REPORT INFORMATION
  Report Type: 
  Country: None (occurrence: None)
  Receive Date: 20050509
  Receipt Date: 20050425
  Transmission Date: 20051028
  Serious: Yes (Disabling)
  Sender: FDA-Public Use
  Company Number: 2005GB00802

PATIENT
  Age: 38 Year
  Sex: Male
  Weight: 84 kg

DRUGS (1)
  1. OMEPRAZOLE [Suspect]
     Indication: ABDOMINAL DISTENSION
     Dosage: 20 MG PO
     Route: 048
     Dates: start: 20050120, end: 20050131

REACTIONS (1)
  - CHOLESTASIS [None]
